FAERS Safety Report 6856848-7 (Version None)
Quarter: 2010Q3

REPORT INFORMATION
  Report Type: 
  Country: None (occurrence: None)
  Receive Date: 20100714
  Receipt Date: 20100630
  Transmission Date: 20110219
  Serious: Yes (Other)
  Sender: FDA-Public Use
  Company Number: FR-1182467

PATIENT
  Sex: Male

DRUGS (1)
  1. FLUCON (FLUOROMETHOLENE) 0.1 % OPHTHALMIC SUSPENSION EYE DROPS, SUSPEN [Suspect]
     Dosage: 1 GTT QD OS, OPHTHALMIC
     Route: 047
     Dates: start: 20070101

REACTIONS (2)
  - MACULAR OEDEMA [None]
  - VISUAL IMPAIRMENT [None]
